FAERS Safety Report 8910978 (Version 1)
Quarter: 2012Q4

REPORT INFORMATION
  Report Type: 
  Country: SE (occurrence: SE)
  Receive Date: 20121115
  Receipt Date: 20121115
  Transmission Date: 20130627
  Serious: Yes (Hospitalization)
  Sender: FDA-Public Use
  Company Number: SE-ARROW-2012-19455

PATIENT
  Age: 55 Year
  Sex: Female

DRUGS (3)
  1. LOSARTAN POTASSIUM (UNKNOWN) [Suspect]
     Indication: HYPERTENSION
     Dosage: 50 mg, UNK
     Route: 065
  2. PREDNISOLONE [Concomitant]
     Indication: NEURODERMATITIS
     Dosage: 5 mg, daily
     Route: 048
  3. CLEMASTIN [Concomitant]
     Indication: NEURODERMATITIS
     Dosage: 1 mg, tid
     Route: 048

REACTIONS (1)
  - Arteriospasm coronary [Recovered/Resolved with Sequelae]
